FAERS Safety Report 18400057 (Version 1)
Quarter: 2020Q4

REPORT INFORMATION
  Report Type: Spontaneous
  Country: US (occurrence: US)
  Receive Date: 20201019
  Receipt Date: 20201019
  Transmission Date: 20210114
  Serious: No
  Sender: FDA-Public Use
  Company Number: US-ALLERGAN-2001168US

PATIENT
  Sex: Female

DRUGS (1)
  1. VRAYLAR [Suspect]
     Active Substance: CARIPRAZINE
     Indication: PSYCHOTIC DISORDER
     Dosage: 1.5 MG, QD
     Route: 048
     Dates: start: 2019, end: 2019

REACTIONS (3)
  - Drug hypersensitivity [Not Recovered/Not Resolved]
  - Tardive dyskinesia [Unknown]
  - Tongue thrust [Not Recovered/Not Resolved]

NARRATIVE: CASE EVENT DATE: 2019
